FAERS Safety Report 13880722 (Version 1)
Quarter: 2017Q3

REPORT INFORMATION
  Report Type: Spontaneous
  Country: AR (occurrence: AR)
  Receive Date: 20170818
  Receipt Date: 20170818
  Transmission Date: 20171127
  Serious: Yes (Hospitalization)
  Sender: FDA-Public Use
  Company Number: AR-PFIZER INC-2017350941

PATIENT
  Age: 14 Year
  Sex: Male

DRUGS (1)
  1. GENOTROPIN [Suspect]
     Active Substance: SOMATROPIN
     Indication: FOETAL GROWTH RESTRICTION
     Dosage: 1,5 TO 2MG 6 TIMES PER WEEK
     Dates: start: 20140827

REACTIONS (1)
  - Blood carbon monoxide abnormal [Recovered/Resolved]

NARRATIVE: CASE EVENT DATE: 20170618
